FAERS Safety Report 14127018 (Version 3)
Quarter: 2017Q4

REPORT INFORMATION
  Report Type: Spontaneous
  Country: TR (occurrence: TR)
  Receive Date: 20171026
  Receipt Date: 20171119
  Transmission Date: 20180321
  Serious: Yes (Hospitalization)
  Sender: FDA-Public Use
  Company Number: TR-ABBVIE-17P-161-2136594-00

PATIENT
  Age: 28 Year

DRUGS (1)
  1. SEVORANE [Suspect]
     Active Substance: SEVOFLURANE
     Indication: PRODUCT USED FOR UNKNOWN INDICATION
     Dosage: NOT APPLICABLE
     Route: 055

REACTIONS (4)
  - Device use error [Unknown]
  - Occupational exposure to product [Unknown]
  - Headache [Unknown]
  - Muscle twitching [Unknown]

NARRATIVE: CASE EVENT DATE: 20171019
